FAERS Safety Report 21359545 (Version 2)
Quarter: 2022Q4

REPORT INFORMATION
  Report Type: Spontaneous
  Country: RS (occurrence: RS)
  Receive Date: 20220921
  Receipt Date: 20221018
  Transmission Date: 20230113
  Serious: Yes (Death, Other)
  Sender: FDA-Public Use
  Company Number: RS-BAYER-2022P008989

PATIENT
  Age: 65 Year
  Sex: Male

DRUGS (1)
  1. NEXAVAR [Suspect]
     Active Substance: SORAFENIB
     Indication: Hepatocellular carcinoma
     Dosage: 400 MG DAILY

REACTIONS (2)
  - Hepatocellular carcinoma [Fatal]
  - Off label use [None]
